FAERS Safety Report 9231814 (Version 1)
Quarter: 2013Q2

REPORT INFORMATION
  Report Type: Spontaneous
  Country: US (occurrence: US)
  Receive Date: 20130415
  Receipt Date: 20130415
  Transmission Date: 20140414
  Serious: No
  Sender: FDA-Public Use
  Company Number: US-PFIZER INC-2013117529

PATIENT
  Age: 58 Year
  Sex: Female
  Weight: 86.17 kg

DRUGS (10)
  1. CHANTIX [Suspect]
     Indication: SMOKING CESSATION THERAPY
     Dosage: UNK
     Dates: start: 20130107, end: 20130410
  2. ARIMIDEX [Suspect]
     Indication: INTRADUCTAL PROLIFERATIVE BREAST LESION
     Dosage: UNK
  3. LISINOPRIL W/HYDROCHLOROTHIAZIDE [Concomitant]
     Indication: HYPERTENSION
     Dosage: [LISINOPRIL 20MG]/[HYDROCHLOROTHIAZIDE 25 MG], DAILY
  4. LEVOTHYROXINE [Concomitant]
     Indication: BLOOD THYROID STIMULATING HORMONE DECREASED
     Dosage: 150 UG, DAILY
  5. SIMVASTATIN [Concomitant]
     Indication: BLOOD CHOLESTEROL ABNORMAL
     Dosage: 20 MG, DAILY
  6. ASPIRIN [Concomitant]
     Dosage: 81 MG, DAILY
  7. PREVACID [Concomitant]
     Indication: GASTROOESOPHAGEAL REFLUX DISEASE
     Dosage: 20.2 MG, DAILY
  8. HYDROCODONE W/ACETAMINOPHEN [Concomitant]
     Indication: PAIN
     Dosage: [HYDROCODONE 10MG]\[ACETAMINOPHEN325 MG], 6X/DAY
  9. IBUPROFEN [Concomitant]
     Indication: PAIN
     Dosage: 800 MG, 2X/DAY
  10. CARISOPRODOL [Concomitant]
     Indication: PAIN
     Dosage: 350 MG, 3X/DAY

REACTIONS (1)
  - Muscle spasms [Not Recovered/Not Resolved]
